FAERS Safety Report 10935472 (Version 2)
Quarter: 2015Q1

REPORT INFORMATION
  Report Type: Spontaneous
  Country: CA (occurrence: CA)
  Receive Date: 20150320
  Receipt Date: 20150331
  Transmission Date: 20150721
  Serious: No
  Sender: FDA-Public Use
  Company Number: CA-GLAXOSMITHKLINE-CA2015GSK036691

PATIENT
  Age: 52 Year
  Sex: Female

DRUGS (4)
  1. CLAVULIN [Suspect]
     Active Substance: AMOXICILLIN\CLAVULANIC ACID
     Indication: EYE INFECTION
     Dosage: 500 MG, BID
     Dates: start: 20150309, end: 20150316
  2. TAXOL [Suspect]
     Active Substance: PACLITAXEL
     Indication: PRODUCT USED FOR UNKNOWN INDICATION
     Dosage: UNK
  3. VALTREX [Suspect]
     Active Substance: VALACYCLOVIR HYDROCHLORIDE
     Indication: EYE INFECTION
     Dosage: 1000 MG, BID
     Dates: start: 20150309, end: 20150313
  4. PERJETA [Concomitant]
     Active Substance: PERTUZUMAB
     Indication: HER-2 POSITIVE BREAST CANCER
     Dosage: 840 MG, U
     Dates: start: 20141030

REACTIONS (2)
  - Hypoaesthesia [Unknown]
  - Diarrhoea [Unknown]
